FAERS Safety Report 8359317-0 (Version None)
Quarter: 2012Q2

REPORT INFORMATION
  Report Type: 
  Country: None (occurrence: None)
  Receive Date: 20120515
  Receipt Date: 20120510
  Transmission Date: 20120825
  Serious: No
  Sender: FDA-Public Use
  Company Number: US-PFIZER INC-2012114643

PATIENT
  Sex: Female

DRUGS (7)
  1. LEVOXYL [Concomitant]
     Dosage: 125 MCG
  2. LIPITOR [Suspect]
     Dosage: 40 MG, ONE TABLET AT BEDTIME
  3. IBUPROFEN [Concomitant]
     Dosage: 800 MG
  4. FLEXERIL [Concomitant]
     Dosage: 10 MG
  5. LOPRESSOR [Concomitant]
     Dosage: 50 MG
  6. PRINZIDE [Concomitant]
     Dosage: 20/25
  7. CELEBREX [Suspect]
     Dosage: 100 MG, UNK

REACTIONS (1)
  - PAIN [None]
